FAERS Safety Report 6977453-8 (Version None)
Quarter: 2010Q3

REPORT INFORMATION
  Report Type: 
  Country: None (occurrence: None)
  Receive Date: 20100910
  Receipt Date: 20100831
  Transmission Date: 20110219
  Serious: Yes (Hospitalization, Other)
  Sender: FDA-Public Use
  Company Number: US-ABBOTT-10P-163-0667250-00

PATIENT
  Sex: Female

DRUGS (5)
  1. HUMIRA [Suspect]
     Indication: RHEUMATOID ARTHRITIS
     Route: 058
     Dates: start: 20091201, end: 20100101
  2. HUMIRA [Suspect]
     Dates: start: 20100101
  3. CYMBALTA [Concomitant]
     Indication: FIBROMYALGIA
  4. FLEXERIL [Concomitant]
     Indication: MUSCLE SPASMS
  5. NEURONTIN [Concomitant]
     Indication: NEUROPATHY PERIPHERAL

REACTIONS (5)
  - ARTHRALGIA [None]
  - COUGH [None]
  - DYSPNOEA [None]
  - MENISCUS LESION [None]
  - PULMONARY EMBOLISM [None]
